FAERS Safety Report 16071684 (Version 1)
Quarter: 2019Q1

REPORT INFORMATION
  Report Type: Spontaneous
  Country: CA (occurrence: CA)
  Receive Date: 20190314
  Receipt Date: 20190314
  Transmission Date: 20190418
  Serious: Yes (Other)
  Sender: FDA-Public Use
  Company Number: CA-SAMSUNG BIOEPIS-SB-2019-05755

PATIENT
  Sex: Male

DRUGS (78)
  1. IMURAN [Suspect]
     Active Substance: AZATHIOPRINE
     Dosage: UNKNOWN
     Route: 042
  2. FOLIC ACID. [Suspect]
     Active Substance: FOLIC ACID
     Dosage: UNKNOWN
     Route: 042
  3. FOLIC ACID. [Suspect]
     Active Substance: FOLIC ACID
     Dosage: UNKNOWN
     Route: 042
  4. FOLIC ACID. [Suspect]
     Active Substance: FOLIC ACID
     Dosage: UNKNOWN
     Route: 065
  5. LASIX [Suspect]
     Active Substance: FUROSEMIDE
     Dosage: UNKNOWN
     Route: 065
  6. VITAMIN E NOS [Suspect]
     Active Substance: .ALPHA.-TOCOPHEROL
     Dosage: UNKNOWN
     Route: 042
  7. VITAMIN E NOS [Suspect]
     Active Substance: .ALPHA.-TOCOPHEROL
     Dosage: UNKNOWN
     Route: 065
  8. METOPROLOL. [Suspect]
     Active Substance: METOPROLOL
     Indication: BLOOD PRESSURE ABNORMAL
     Route: 048
  9. IMURAN [Suspect]
     Active Substance: AZATHIOPRINE
     Indication: PRODUCT USED FOR UNKNOWN INDICATION
     Dosage: UNKNOWN
     Route: 065
  10. IMURAN [Suspect]
     Active Substance: AZATHIOPRINE
     Dosage: UNKNOWN
     Route: 042
  11. IMURAN [Suspect]
     Active Substance: AZATHIOPRINE
     Dosage: UNKNOWN
     Route: 042
  12. IMURAN [Suspect]
     Active Substance: AZATHIOPRINE
     Dosage: UNKNOWN
     Route: 042
  13. AZATHIOPRINE. [Suspect]
     Active Substance: AZATHIOPRINE
     Dosage: UNKNOWN
     Route: 042
  14. AZATHIOPRINE. [Suspect]
     Active Substance: AZATHIOPRINE
     Dosage: UNKNOWN
     Route: 065
  15. FOLIC ACID. [Suspect]
     Active Substance: FOLIC ACID
     Dosage: UNKNOWN
     Route: 065
  16. LASIX [Suspect]
     Active Substance: FUROSEMIDE
     Indication: PRODUCT USED FOR UNKNOWN INDICATION
     Route: 048
  17. WARFARIN [Suspect]
     Active Substance: WARFARIN
     Dosage: UNKNOWN
     Route: 042
  18. AZATHIOPRINE. [Suspect]
     Active Substance: AZATHIOPRINE
     Dosage: UNKNOWN
     Route: 042
  19. FOLIC ACID. [Suspect]
     Active Substance: FOLIC ACID
     Dosage: UNKNOWN
     Route: 042
  20. LASIX [Suspect]
     Active Substance: FUROSEMIDE
     Dosage: UNKNOWN
     Route: 065
  21. PANTOPRAZOLE [Suspect]
     Active Substance: PANTOPRAZOLE
     Dosage: UNKNOWN
     Route: 065
  22. ULTIBRO BREEZHALER [Suspect]
     Active Substance: GLYCOPYRRONIUM\INDACATEROL
     Dosage: UNKNOWN
     Route: 042
  23. ULTIBRO BREEZHALER [Suspect]
     Active Substance: GLYCOPYRRONIUM\INDACATEROL
     Dosage: UNKNOWN
     Route: 042
  24. VITAMIN E NOS [Suspect]
     Active Substance: .ALPHA.-TOCOPHEROL
     Dosage: UNKNOWN
     Route: 065
  25. WARFARIN [Suspect]
     Active Substance: WARFARIN
     Dosage: UNKNOWN
     Route: 042
  26. WARFARIN [Suspect]
     Active Substance: WARFARIN
     Dosage: UNKNOWN
     Route: 065
  27. WARFARIN [Suspect]
     Active Substance: WARFARIN
     Dosage: UNKNOWN
     Route: 065
  28. INFLIXIMAB [Suspect]
     Active Substance: INFLIXIMAB
     Indication: CROHN^S DISEASE
     Dosage: UNKNOWN
     Route: 042
  29. IMURAN [Suspect]
     Active Substance: AZATHIOPRINE
     Dosage: UNKNOWN
     Route: 065
  30. AZATHIOPRINE. [Suspect]
     Active Substance: AZATHIOPRINE
     Indication: PRODUCT USED FOR UNKNOWN INDICATION
     Dosage: UNKNOWN
     Route: 048
  31. AZATHIOPRINE. [Suspect]
     Active Substance: AZATHIOPRINE
     Dosage: UNKNOWN
     Route: 042
  32. AZATHIOPRINE. [Suspect]
     Active Substance: AZATHIOPRINE
     Dosage: UNKNOWN
     Route: 042
  33. AZATHIOPRINE. [Suspect]
     Active Substance: AZATHIOPRINE
     Dosage: UNKNOWN
     Route: 065
  34. AZATHIOPRINE. [Suspect]
     Active Substance: AZATHIOPRINE
     Dosage: UNKNOWN
     Route: 065
  35. PANTOPRAZOLE [Suspect]
     Active Substance: PANTOPRAZOLE
     Indication: PRODUCT USED FOR UNKNOWN INDICATION
     Route: 048
  36. PANTOPRAZOLE [Suspect]
     Active Substance: PANTOPRAZOLE
     Dosage: UNKNOWN
     Route: 065
  37. ULTIBRO BREEZHALER [Suspect]
     Active Substance: GLYCOPYRRONIUM\INDACATEROL
     Dosage: UNKNOWN
     Route: 042
  38. ULTIBRO BREEZHALER [Suspect]
     Active Substance: GLYCOPYRRONIUM\INDACATEROL
     Dosage: UNKNOWN
     Route: 065
  39. VITAMIN E NOS [Suspect]
     Active Substance: .ALPHA.-TOCOPHEROL
     Dosage: UNKNOWN
     Route: 042
  40. CALCIUM CARBONATE/VITAMIN D3 [Suspect]
     Active Substance: CALCIUM CARBONATE\CHOLECALCIFEROL
     Indication: OSTEOPOROSIS
     Route: 048
  41. HYDROMORPH CONTIN [Suspect]
     Active Substance: HYDROMORPHONE
     Indication: PAIN
     Dosage: CAPSULE SUSTAINED RELEASE
     Route: 048
  42. FOLIC ACID. [Suspect]
     Active Substance: FOLIC ACID
     Indication: PRODUCT USED FOR UNKNOWN INDICATION
     Route: 048
  43. FOLIC ACID. [Suspect]
     Active Substance: FOLIC ACID
     Dosage: UNKNOWN
     Route: 065
  44. FOLIC ACID. [Suspect]
     Active Substance: FOLIC ACID
     Dosage: UNKNOWN
     Route: 065
  45. LASIX [Suspect]
     Active Substance: FUROSEMIDE
     Dosage: UNKNOWN
     Route: 065
  46. PANTOPRAZOLE [Suspect]
     Active Substance: PANTOPRAZOLE
     Dosage: UNKNOWN
     Route: 042
  47. ULTIBRO BREEZHALER [Suspect]
     Active Substance: GLYCOPYRRONIUM\INDACATEROL
     Dosage: UNKNOWN
     Route: 042
  48. VITAMIN E NOS [Suspect]
     Active Substance: .ALPHA.-TOCOPHEROL
     Indication: PRODUCT USED FOR UNKNOWN INDICATION
     Route: 048
  49. WARFARIN [Suspect]
     Active Substance: WARFARIN
     Dosage: UNKNOWN
     Route: 042
  50. WARFARIN [Suspect]
     Active Substance: WARFARIN
     Dosage: UNKNOWN
     Route: 065
  51. PREDNISONE ACETATE [Concomitant]
     Active Substance: PREDNISONE ACETATE
     Indication: PRODUCT USED FOR UNKNOWN INDICATION
     Dosage: UNKNOWN
     Route: 048
  52. IMURAN [Suspect]
     Active Substance: AZATHIOPRINE
     Dosage: UNKNOWN
     Route: 065
  53. AZATHIOPRINE. [Suspect]
     Active Substance: AZATHIOPRINE
     Dosage: UNKNOWN
     Route: 065
  54. FOLIC ACID. [Suspect]
     Active Substance: FOLIC ACID
     Dosage: UNKNOWN
     Route: 042
  55. LASIX [Suspect]
     Active Substance: FUROSEMIDE
     Dosage: UNKNOWN
     Route: 042
  56. LASIX [Suspect]
     Active Substance: FUROSEMIDE
     Dosage: UNKNOWN
     Route: 065
  57. PANTOPRAZOLE [Suspect]
     Active Substance: PANTOPRAZOLE
     Dosage: UNKNOWN
     Route: 042
  58. PANTOPRAZOLE [Suspect]
     Active Substance: PANTOPRAZOLE
     Dosage: UNKNOWN
     Route: 065
  59. ULTIBRO BREEZHALER [Suspect]
     Active Substance: GLYCOPYRRONIUM\INDACATEROL
     Dosage: UNKNOWN
     Route: 065
  60. ULTIBRO BREEZHALER [Suspect]
     Active Substance: GLYCOPYRRONIUM\INDACATEROL
     Dosage: UNKNOWN
     Route: 065
  61. WARFARIN [Suspect]
     Active Substance: WARFARIN
     Indication: ANTICOAGULANT THERAPY
     Route: 048
  62. WARFARIN [Suspect]
     Active Substance: WARFARIN
     Dosage: UNKNOWN
     Route: 065
  63. IMURAN [Suspect]
     Active Substance: AZATHIOPRINE
     Dosage: UNKNOWN
     Route: 065
  64. IMURAN [Suspect]
     Active Substance: AZATHIOPRINE
     Dosage: UNKNOWN
     Route: 065
  65. LASIX [Suspect]
     Active Substance: FUROSEMIDE
     Dosage: UNKNOWN
     Route: 042
  66. LASIX [Suspect]
     Active Substance: FUROSEMIDE
     Dosage: UNKNOWN
     Route: 042
  67. PANTOPRAZOLE [Suspect]
     Active Substance: PANTOPRAZOLE
     Dosage: UNKNOWN
     Route: 042
  68. PANTOPRAZOLE [Suspect]
     Active Substance: PANTOPRAZOLE
     Dosage: UNKNOWN
     Route: 042
  69. WARFARIN [Suspect]
     Active Substance: WARFARIN
     Dosage: UNKNOWN
     Route: 042
  70. LASIX [Suspect]
     Active Substance: FUROSEMIDE
     Dosage: UNKNOWN
     Route: 042
  71. PANTOPRAZOLE [Suspect]
     Active Substance: PANTOPRAZOLE
     Dosage: UNKNOWN
     Route: 065
  72. ULTIBRO BREEZHALER [Suspect]
     Active Substance: GLYCOPYRRONIUM\INDACATEROL
     Indication: PRODUCT USED FOR UNKNOWN INDICATION
     Dosage: UNKNOWN
  73. ULTIBRO BREEZHALER [Suspect]
     Active Substance: GLYCOPYRRONIUM\INDACATEROL
     Dosage: UNKNOWN
     Route: 065
  74. VITAMIN E NOS [Suspect]
     Active Substance: .ALPHA.-TOCOPHEROL
     Dosage: UNKNOWN
     Route: 042
  75. VITAMIN E NOS [Suspect]
     Active Substance: .ALPHA.-TOCOPHEROL
     Dosage: UNKNOWN
     Route: 042
  76. VITAMIN E NOS [Suspect]
     Active Substance: .ALPHA.-TOCOPHEROL
     Dosage: UNKNOWN
     Route: 065
  77. VITAMIN E NOS [Suspect]
     Active Substance: .ALPHA.-TOCOPHEROL
     Dosage: UNKNOWN
     Route: 065
  78. ARANESP [Suspect]
     Active Substance: DARBEPOETIN ALFA
     Indication: ANAEMIA
     Dosage: UNKNOWN (SOLUTION INTRAVENOUS)
     Route: 058

REACTIONS (2)
  - Drug intolerance [Unknown]
  - Leukopenia [Unknown]
